FAERS Safety Report 10224754 (Version 1)
Quarter: 2014Q2

REPORT INFORMATION
  Report Type: Spontaneous
  Country: US (occurrence: US)
  Receive Date: 20140609
  Receipt Date: 20140609
  Transmission Date: 20141212
  Serious: Yes (Hospitalization, Other)
  Sender: FDA-Public Use
  Company Number: US-B.I. PHARMACEUTICALS,INC./RIDGEFIELD-2014-BI-25054BP

PATIENT
  Sex: Male

DRUGS (2)
  1. DULCOLAX TABLETS [Suspect]
     Indication: PRODUCT USED FOR UNKNOWN INDICATION
     Route: 048
  2. UNKNOWN MEDICATION [Concomitant]
     Indication: FAECES HARD
     Route: 048

REACTIONS (3)
  - Functional gastrointestinal disorder [Unknown]
  - Intestinal obstruction [Unknown]
  - Constipation [Not Recovered/Not Resolved]
